FAERS Safety Report 4955174-0 (Version None)
Quarter: 2006Q1

REPORT INFORMATION
  Report Type: 
  Country: None (occurrence: None)
  Receive Date: 20060328
  Receipt Date: 20060316
  Transmission Date: 20060701
  Serious: Yes (Hospitalization)
  Sender: FDA-Public Use
  Company Number: US-JNJFOC-20060304157

PATIENT
  Sex: Female
  Weight: 63.5 kg

DRUGS (5)
  1. INFLIXIMAB [Suspect]
     Indication: RHEUMATOID ARTHRITIS
     Route: 042
  2. METHOTREXATE [Concomitant]
  3. LISINOPRIL [Concomitant]
  4. PRILOSEC [Concomitant]
  5. MOTRIN [Concomitant]
     Route: 048

REACTIONS (3)
  - ARTERIAL STENOSIS [None]
  - COLITIS ISCHAEMIC [None]
  - GASTROINTESTINAL TRACT ADENOMA [None]
